FAERS Safety Report 7381140-4 (Version None)
Quarter: 2011Q1

REPORT INFORMATION
  Report Type: 
  Country: None (occurrence: None)
  Receive Date: 20110329
  Receipt Date: 20110126
  Transmission Date: 20110831
  Serious: Yes (Other)
  Sender: FDA-Public Use
  Company Number: US-AMGEN-USASP2011004960

PATIENT
  Sex: Male

DRUGS (10)
  1. AMBIEN [Concomitant]
  2. ASPIRIN [Concomitant]
  3. RENVELA [Concomitant]
  4. NEPHROVITE [Concomitant]
  5. PREVACID [Concomitant]
  6. TYLENOL (CAPLET) [Concomitant]
     Dosage: UNK
  7. FOSRENOL [Concomitant]
  8. SENSIPAR [Suspect]
  9. COLACE [Concomitant]
  10. CLONOPIN [Concomitant]

REACTIONS (3)
  - DECREASED APPETITE [None]
  - VOMITING [None]
  - NAUSEA [None]
